FAERS Safety Report 7361059-5 (Version None)
Quarter: 2011Q1

REPORT INFORMATION
  Report Type: 
  Country: None (occurrence: None)
  Receive Date: 20110318
  Receipt Date: 20101123
  Transmission Date: 20110831
  Serious: No
  Sender: FDA-Public Use
  Company Number: US-BAYER-2011-023928

PATIENT
  Sex: Female
  Weight: 50.794 kg

DRUGS (1)
  1. ALEVE (CAPLET) [Suspect]
     Indication: TOOTHACHE
     Dosage: 3 DF, BID, BOTTLE COUNT 100S
     Route: 048
     Dates: start: 20101123

REACTIONS (4)
  - ASTHENIA [None]
  - FEELING ABNORMAL [None]
  - DIZZINESS [None]
  - DRY MOUTH [None]
